FAERS Safety Report 5191863-3 (Version None)
Quarter: 2006Q4

REPORT INFORMATION
  Report Type: 
  Country: None (occurrence: None)
  Receive Date: 20061227
  Receipt Date: 20061219
  Transmission Date: 20070319
  Serious: Yes (Other)
  Sender: FDA-Public Use
  Company Number: DE-BAYER-200611759BVD

PATIENT

DRUGS (1)
  1. LEVITRA [Suspect]
     Indication: UNEVALUABLE EVENT

REACTIONS (2)
  - OPTIC NERVE DISORDER [None]
  - VISUAL FIELD DEFECT [None]
